FAERS Safety Report 6094014-6 (Version None)
Quarter: 2009Q1

REPORT INFORMATION
  Report Type: 
  Country: None (occurrence: None)
  Receive Date: 20090224
  Receipt Date: 20090224
  Transmission Date: 20090719
  Serious: No
  Sender: FDA-Public Use
  Company Number: None

PATIENT
  Sex: Female
  Weight: 60.45 kg

DRUGS (9)
  1. DOXYCYCLINE HYCLATE [Suspect]
     Dosage: 100 MG TABLET 100 MG BID ORAL
     Route: 048
     Dates: start: 20090219, end: 20090223
  2. ADDERALL XR 20 [Concomitant]
  3. BACTROBAN [Concomitant]
  4. CEPHALEXIN [Concomitant]
  5. IBUPROFEN [Concomitant]
  6. MULTIVITIMINS [Concomitant]
  7. TYLENOL W/ CODEINE NO. 3 [Concomitant]
  8. VICODIN [Concomitant]
  9. YASMIN [Concomitant]

REACTIONS (1)
  - GASTROINTESTINAL DISORDER [None]
